FAERS Safety Report 19981287 (Version 1)
Quarter: 2021Q4

REPORT INFORMATION
  Report Type: Spontaneous
  Country: US (occurrence: US)
  Receive Date: 20211021
  Receipt Date: 20211021
  Transmission Date: 20220303
  Serious: No
  Sender: FDA-Public Use
  Company Number: US-TAKEDA-2021TUS063484

PATIENT
  Sex: Female

DRUGS (1)
  1. VYVANSE [Suspect]
     Active Substance: LISDEXAMFETAMINE DIMESYLATE
     Indication: Emotional disorder of childhood
     Dosage: 60 MILLIGRAM, QD
     Route: 065
     Dates: start: 201602

REACTIONS (4)
  - Off label use [Unknown]
  - Product availability issue [Unknown]
  - Product packaging quantity issue [Unknown]
  - No adverse event [Unknown]
